FAERS Safety Report 23410764 (Version 4)
Quarter: 2024Q4

REPORT INFORMATION
  Report Type: Report from Study
  Country: CO (occurrence: CO)
  Receive Date: 20240117
  Receipt Date: 20241120
  Transmission Date: 20250115
  Serious: Yes (Death, Hospitalization, Other)
  Sender: TAKEDA
  Company Number: CO-TAKEDA-2024TUS004385

PATIENT
  Age: 27 Year
  Sex: Male
  Weight: 73 kg

DRUGS (1)
  1. PONATINIB [Suspect]
     Active Substance: PONATINIB
     Indication: Acute lymphocytic leukaemia
     Dosage: 45 MILLIGRAM, QD
     Dates: start: 20230412

REACTIONS (6)
  - Cardio-respiratory arrest [Fatal]
  - Arachnoiditis [Recovering/Resolving]
  - Sensory disturbance [Unknown]
  - Seizure [Recovering/Resolving]
  - Areflexia [Unknown]
  - Asthenia [Unknown]

NARRATIVE: CASE EVENT DATE: 20240110
